FAERS Safety Report 8570440-8 (Version None)
Quarter: 2012Q3

REPORT INFORMATION
  Report Type: 
  Country: None (occurrence: None)
  Receive Date: 20120803
  Receipt Date: 20120801
  Transmission Date: 20120928
  Serious: Yes (Death)
  Sender: FDA-Public Use
  Company Number: US-GILEAD-2012-0059194

PATIENT
  Sex: Male

DRUGS (12)
  1. METOPROLOL TARTRATE [Concomitant]
     Indication: HYPERTENSION
  2. NITROGLYCERIN [Concomitant]
     Indication: PROPHYLAXIS
     Dosage: UNK
     Dates: start: 20110117
  3. NAPROXEN [Concomitant]
     Indication: SCIATICA
     Dosage: UNK
     Dates: start: 20110616
  4. IBUPROFEN [Concomitant]
     Indication: MUSCULOSKELETAL PAIN
     Dosage: UNK
     Dates: start: 20030915
  5. SIMVASTATIN [Concomitant]
     Indication: HYPERCHOLESTEROLAEMIA
     Dosage: UNK
     Dates: start: 20080120
  6. MELOXICAM [Concomitant]
     Indication: SCIATICA
     Dosage: UNK
     Dates: start: 20110616
  7. ASPIRIN [Concomitant]
     Indication: PROPHYLAXIS
     Dosage: UNK
     Dates: start: 20080117
  8. TENOFOVIR DISOPROXIL FUMARATE [Suspect]
     Indication: HEPATITIS B
     Dosage: 300 MG, QD
     Route: 048
     Dates: start: 20060317
  9. GABAPENTIN [Concomitant]
     Indication: SCIATICA
     Dosage: UNK
     Dates: start: 20110616
  10. TEMAZEPAM [Concomitant]
     Indication: INSOMNIA
     Dosage: UNK
     Dates: start: 20090213
  11. NIFEDIPINE [Concomitant]
     Indication: HYPERTENSION
     Dosage: UNK
     Dates: start: 20050414
  12. OMEPRAZOLE [Concomitant]
     Indication: PROPHYLAXIS
     Dosage: UNK
     Dates: start: 20070919

REACTIONS (1)
  - DEATH [None]
